FAERS Safety Report 8265875-7 (Version None)
Quarter: 2012Q2

REPORT INFORMATION
  Report Type: 
  Country: None (occurrence: None)
  Receive Date: 20120406
  Receipt Date: 20120328
  Transmission Date: 20120825
  Serious: Yes (Life-Threatening, Hospitalization)
  Sender: FDA-Public Use
  Company Number: FR-GLAXOSMITHKLINE-B0778035A

PATIENT
  Sex: Male
  Weight: 72 kg

DRUGS (4)
  1. PREVISCAN [Suspect]
     Indication: DEEP VEIN THROMBOSIS
     Dosage: 1TAB PER DAY
     Route: 048
     Dates: start: 20111101, end: 20111101
  2. CHONDROSULF [Concomitant]
  3. ARIXTRA [Suspect]
     Indication: DEEP VEIN THROMBOSIS
     Dosage: 7.5MG PER DAY
     Route: 058
     Dates: start: 20111025, end: 20111107
  4. PERINDOPRIL ERBUMINE [Concomitant]
     Indication: HYPERTENSION
     Dosage: 2.5MG PER DAY

REACTIONS (1)
  - MUSCLE HAEMORRHAGE [None]
